FAERS Safety Report 23543127 (Version 1)
Quarter: 2024Q1

REPORT INFORMATION
  Report Type: Spontaneous
  Country: US (occurrence: US)
  Receive Date: 20240220
  Receipt Date: 20240220
  Transmission Date: 20240409
  Serious: No
  Sender: FDA-Public Use
  Company Number: US-SANOFI-01946392

PATIENT
  Age: 76 Year
  Sex: Female

DRUGS (1)
  1. LANTUS SOLOSTAR [Suspect]
     Active Substance: INSULIN GLARGINE
     Indication: Latent autoimmune diabetes in adults
     Dosage: 10 UNITS IN THE MORNING, 5 UNITS AT NIGHT BID
     Dates: start: 2016

REACTIONS (1)
  - Inappropriate schedule of product administration [Unknown]
